FAERS Safety Report 17373319 (Version 1)
Quarter: 2020Q1

REPORT INFORMATION
  Report Type: Spontaneous
  Country: IE (occurrence: IE)
  Receive Date: 20200205
  Receipt Date: 20200205
  Transmission Date: 20200409
  Serious: Yes (Death)
  Sender: FDA-Public Use
  Company Number: IE-PURDUE-GBR-2020-0074822

PATIENT
  Age: 40 Year
  Sex: Female

DRUGS (1)
  1. OXYNORM [Suspect]
     Active Substance: OXYCODONE HYDROCHLORIDE
     Indication: NEOPLASM MALIGNANT
     Dosage: UNK (STRENGTH 10MG)
     Route: 065

REACTIONS (2)
  - Malignant neoplasm progression [Fatal]
  - Product dose omission [Unknown]
